FAERS Safety Report 8688725 (Version 3)
Quarter: 2013Q1

REPORT INFORMATION
  Report Type: Spontaneous
  Country: US (occurrence: US)
  Receive Date: 20120727
  Receipt Date: 20130226
  Transmission Date: 20140127
  Serious: Yes (Hospitalization)
  Sender: FDA-Public Use
  Company Number: CHPA2012US016019

PATIENT
  Age: 78 Year
  Sex: Male

DRUGS (2)
  1. VOLTAREN GEL [Suspect]
     Dosage: UNK, UNK
     Route: 061
  2. DABIGATRAN [Suspect]
     Dosage: UNK, UNK
     Route: 065

REACTIONS (3)
  - Localised infection [Recovered/Resolved]
  - Wound [Recovered/Resolved]
  - Expired drug administered [Unknown]
